FAERS Safety Report 8987882 (Version 1)
Quarter: 2012Q4

REPORT INFORMATION
  Report Type: 
  Country: FR (occurrence: FR)
  Receive Date: 20121227
  Receipt Date: 20121227
  Transmission Date: 20130627
  Serious: Yes (Hospitalization)
  Sender: FDA-Public Use
  Company Number: FR-VIIV HEALTHCARE LIMITED-B0851380A

PATIENT
  Age: 0 None
  Sex: Male
  Weight: 1 kg

DRUGS (6)
  1. RETROVIR [Suspect]
     Indication: ANTIVIRAL PROPHYLAXIS
     Dosage: 1.5MGK Twice per day
     Route: 042
     Dates: start: 20121008
  2. COMBIVIR [Concomitant]
     Indication: HIV INFECTION
     Dosage: 1TAB Twice per day
     Route: 064
  3. VIRAMUNE [Concomitant]
     Indication: HIV INFECTION
     Dosage: 1UNIT Twice per day
     Route: 064
  4. ZELITREX [Concomitant]
     Indication: GENITAL HERPES
     Route: 064
  5. ANTI HYPERTENSIVE [Concomitant]
     Indication: GESTATIONAL HYPERTENSION
     Route: 064
     Dates: start: 20120925, end: 20120926
  6. CORTICOSTEROIDS [Concomitant]
     Route: 064
     Dates: start: 20120925, end: 20120926

REACTIONS (3)
  - Haemolytic anaemia [Not Recovered/Not Resolved]
  - Premature baby [Unknown]
  - Foetal exposure during pregnancy [Unknown]
